FAERS Safety Report 9259212 (Version 1)
Quarter: 2013Q2

REPORT INFORMATION
  Report Type: Spontaneous
  Country: FR (occurrence: FR)
  Receive Date: 20130426
  Receipt Date: 20130426
  Transmission Date: 20140414
  Serious: Yes (Life-Threatening)
  Sender: FDA-Public Use
  Company Number: FR-ASTRAZENECA-2013SE28099

PATIENT
  Sex: Female

DRUGS (1)
  1. LIDOCAIN NAPHAZOLIN [Suspect]
     Indication: ANAESTHESIA
     Dosage: NAPHAZOLIN 5%

REACTIONS (6)
  - Stress cardiomyopathy [Recovered/Resolved]
  - Overdose [Recovered/Resolved]
  - Sinus tachycardia [None]
  - Blood pressure systolic increased [None]
  - Ventricular tachycardia [None]
  - Ventricular fibrillation [None]
